FAERS Safety Report 6008605-1 (Version None)
Quarter: 2008Q4

REPORT INFORMATION
  Report Type: 
  Country: None (occurrence: None)
  Receive Date: 20081217
  Receipt Date: 20080903
  Transmission Date: 20090506
  Serious: No
  Sender: FDA-Public Use
  Company Number: US-AMGEN-KDL305525

PATIENT
  Sex: Female
  Weight: 38.6 kg

DRUGS (2)
  1. ARANESP [Suspect]
     Indication: ANAEMIA
  2. PROCRIT [Suspect]
     Indication: ANAEMIA

REACTIONS (5)
  - ASTHENIA [None]
  - DIARRHOEA [None]
  - DIZZINESS [None]
  - FATIGUE [None]
  - NAUSEA [None]
